FAERS Safety Report 10039539 (Version 1)
Quarter: 2014Q1

REPORT INFORMATION
  Report Type: Spontaneous
  Country: US (occurrence: US)
  Receive Date: 20140326
  Receipt Date: 20140326
  Transmission Date: 20141002
  Serious: No
  Sender: FDA-Public Use
  Company Number: US-GILEAD-2014-0097776

PATIENT
  Sex: Male

DRUGS (15)
  1. LETAIRIS [Suspect]
     Indication: PULMONARY HYPERTENSION
     Route: 065
     Dates: start: 20140307, end: 20140320
  2. ENBREL [Concomitant]
  3. METHOTREXATE [Concomitant]
  4. CILOSTAZOL [Concomitant]
  5. OXYBUTYNIN [Concomitant]
  6. TAMSULOSIN [Concomitant]
  7. TIMOLOL MALEATE [Concomitant]
  8. ALENDRONATE [Concomitant]
  9. OMEPRAZOLE [Concomitant]
  10. TERAZOSIN [Concomitant]
  11. FENOFIBRATE [Concomitant]
  12. ZETIA [Concomitant]
  13. LISINOPRIL [Concomitant]
  14. PREDNISONE [Concomitant]
  15. CELEBREX [Concomitant]

REACTIONS (3)
  - Oxygen saturation decreased [Unknown]
  - Dyspnoea exertional [Unknown]
  - Oedema peripheral [Unknown]
